FAERS Safety Report 7331477-X (Version None)
Quarter: 2011Q1

REPORT INFORMATION
  Report Type: 
  Country: None (occurrence: None)
  Receive Date: 20110304
  Receipt Date: 20110222
  Transmission Date: 20110831
  Serious: No
  Sender: FDA-Public Use
  Company Number: B0702382A

PATIENT
  Age: 12 Year
  Sex: Male

DRUGS (1)
  1. RELENZA [Suspect]
     Indication: PROPHYLAXIS
     Dosage: 3IUAX PER DAY
     Route: 055

REACTIONS (2)
  - OVERDOSE [None]
  - NO ADVERSE EVENT [None]
